FAERS Safety Report 16808504 (Version 2)
Quarter: 2020Q1

REPORT INFORMATION
  Report Type: Spontaneous
  Country: CA (occurrence: CA)
  Receive Date: 20190916
  Receipt Date: 20200305
  Transmission Date: 20200409
  Serious: Yes (Disabling)
  Sender: FDA-Public Use
  Company Number: CA-JNJFOC-20190908762

PATIENT
  Age: 30 Year
  Sex: Male
  Weight: 99.93 kg

DRUGS (1)
  1. MENS ROGAINE [Suspect]
     Active Substance: MINOXIDIL
     Indication: PRODUCT USED FOR UNKNOWN INDICATION
     Route: 061
     Dates: start: 20171129, end: 20180529

REACTIONS (8)
  - Sensory loss [Unknown]
  - Anxiety [Unknown]
  - Urinary incontinence [Unknown]
  - Penis disorder [Unknown]
  - Peyronie^s disease [Unknown]
  - Erectile dysfunction [Unknown]
  - Feeling abnormal [Unknown]
  - Genital hypoaesthesia [Unknown]
